FAERS Safety Report 16275249 (Version 1)
Quarter: 2019Q2

REPORT INFORMATION
  Report Type: Spontaneous
  Country: US (occurrence: US)
  Receive Date: 20190503
  Receipt Date: 20190503
  Transmission Date: 20190711
  Serious: Yes (Life-Threatening)
  Sender: FDA-Public Use
  Company Number: None

PATIENT
  Age: 58 Year
  Sex: Female
  Weight: 103.5 kg

DRUGS (1)
  1. MIRCERA [Suspect]
     Active Substance: METHOXY POLYETHYLENE GLYCOL-EPOETIN BETA
     Indication: ANAEMIA
     Dosage: 200 UNITS;DIALYSIS TIME; INTO DIALYSIS PORT?
     Dates: start: 20190402, end: 20190502

REACTIONS (12)
  - Dyspnoea [None]
  - Asthenia [None]
  - Hypopnoea [None]
  - Abdominal pain upper [None]
  - Unresponsive to stimuli [None]
  - Drug hypersensitivity [None]
  - Speech disorder [None]
  - Nausea [None]
  - Malaise [None]
  - Abdominal discomfort [None]
  - Oxygen saturation decreased [None]
  - Cold sweat [None]

NARRATIVE: CASE EVENT DATE: 20190502
